FAERS Safety Report 9565583 (Version 1)
Quarter: 2013Q3

REPORT INFORMATION
  Report Type: Spontaneous
  Country: US (occurrence: US)
  Receive Date: 20130930
  Receipt Date: 20130930
  Transmission Date: 20140515
  Serious: No
  Sender: FDA-Public Use
  Company Number: US-PFIZER INC-2013278950

PATIENT
  Age: 13 Year
  Sex: Female
  Weight: 42.63 kg

DRUGS (1)
  1. GENOTROPIN [Suspect]
     Indication: GROWTH HORMONE DEFICIENCY
     Dosage: UNK
     Dates: start: 2013

REACTIONS (2)
  - Injection site pain [Unknown]
  - Injection site mass [Unknown]
